FAERS Safety Report 17019813 (Version 1)
Quarter: 2019Q4

REPORT INFORMATION
  Report Type: Report from Study
  Country: US (occurrence: US)
  Receive Date: 20191112
  Receipt Date: 20191112
  Transmission Date: 20200122
  Serious: No
  Sender: FDA-Public Use
  Company Number: US-IPSEN BIOPHARMACEUTICALS, INC.-2019-20676

PATIENT
  Age: 80 Year

DRUGS (1)
  1. DYSPORT [Suspect]
     Active Substance: ABOBOTULINUMTOXINA
     Indication: MUSCLE SPASTICITY
     Dosage: 400 UNITS- 200 UNITS IN LOWER LIMB DISTAL MUSCLES AND 200 UNITS IN LOWER LIMB PROXIMAL MUSCLES
     Route: 065

REACTIONS (1)
  - Disease progression [Unknown]
